FAERS Safety Report 18922927 (Version 1)
Quarter: 2021Q1

REPORT INFORMATION
  Report Type: Spontaneous
  Country: DE (occurrence: DE)
  Receive Date: 20210222
  Receipt Date: 20210222
  Transmission Date: 20210420
  Serious: Yes (Other)
  Sender: FDA-Public Use
  Company Number: DE-ROCHE-2773321

PATIENT
  Age: 66 Year
  Sex: Male

DRUGS (1)
  1. ROACTEMRA [Suspect]
     Active Substance: TOCILIZUMAB
     Indication: STILL^S DISEASE
     Route: 058
     Dates: start: 202012

REACTIONS (4)
  - Blast cell count increased [Unknown]
  - Intentional product use issue [Unknown]
  - Acute myeloid leukaemia [Unknown]
  - Off label use [Unknown]
